FAERS Safety Report 4901371-X (Version None)
Quarter: 2006Q1

REPORT INFORMATION
  Report Type: 
  Country: None (occurrence: None)
  Receive Date: 20060206
  Receipt Date: 20051111
  Transmission Date: 20060701
  Serious: Yes (Death, Life-Threatening, Hospitalization)
  Sender: FDA-Public Use
  Company Number: MX-ABBOTT-05P-107-0317283-00

PATIENT
  Sex: Male
  Weight: 71 kg

DRUGS (6)
  1. KALETRA [Suspect]
     Indication: DRUG USE FOR UNKNOWN INDICATION
  2. FLUCONAZOLE [Concomitant]
     Indication: PROPHYLAXIS
     Route: 048
  3. BACTRIM [Concomitant]
     Indication: PROPHYLAXIS
     Route: 048
  4. CLARITHROMYCIN [Concomitant]
     Indication: PROPHYLAXIS
     Route: 048
  5. OMEPRAZOLE [Concomitant]
     Indication: DYSPEPSIA
     Route: 048
  6. BLEOMYCIN [Concomitant]
     Indication: KAPOSI'S SARCOMA
     Route: 042

REACTIONS (8)
  - BRADYCARDIA [None]
  - CARDIAC ARREST [None]
  - ECCHYMOSIS [None]
  - FACE OEDEMA [None]
  - PLEURAL EFFUSION [None]
  - PYREXIA [None]
  - TACHYCARDIA [None]
  - THROMBOCYTOPENIA [None]
